FAERS Safety Report 8332022-2 (Version None)
Quarter: 2012Q2

REPORT INFORMATION
  Report Type: 
  Country: None (occurrence: None)
  Receive Date: 20120502
  Receipt Date: 20120425
  Transmission Date: 20120825
  Serious: Yes (Other)
  Sender: FDA-Public Use
  Company Number: CHPA2012BR009391

PATIENT
  Sex: Female
  Weight: 59 kg

DRUGS (2)
  1. ACETAMINOPHEN, ASPIRIN AND CAFFEINE [Suspect]
     Indication: HEADACHE
     Dosage: 4 DF, PRN
     Route: 048
  2. ACETAMINOPHEN (PARACETAMOL),CAFFEINE [Suspect]
     Indication: HEADACHE
     Dosage: UNK, UNK

REACTIONS (8)
  - VISUAL ACUITY REDUCED [None]
  - EXOSTOSIS [None]
  - PAIN IN EXTREMITY [None]
  - MACULOPATHY [None]
  - DRUG INEFFECTIVE [None]
  - RETINAL DISORDER [None]
  - CATARACT [None]
  - SPINAL DISORDER [None]
